FAERS Safety Report 8445743-8 (Version None)
Quarter: 2012Q2

REPORT INFORMATION
  Report Type: 
  Country: None (occurrence: None)
  Receive Date: 20120618
  Receipt Date: 20120611
  Transmission Date: 20120825
  Serious: Yes (Other)
  Sender: FDA-Public Use
  Company Number: JP-GLAXOSMITHKLINE-B0805560A

PATIENT

DRUGS (3)
  1. LITHIUM CARBONATE [Concomitant]
     Route: 048
  2. ZYPREXA [Concomitant]
     Route: 048
  3. LAMICTAL [Suspect]
     Indication: BIPOLAR DISORDER
     Dosage: 150MG PER DAY
     Route: 048
     Dates: start: 20110101

REACTIONS (2)
  - ENANTHEMA [None]
  - RASH [None]
